FAERS Safety Report 13269005 (Version 2)
Quarter: 2017Q1

REPORT INFORMATION
  Report Type: Report from Study
  Country: US (occurrence: US)
  Receive Date: 20170224
  Receipt Date: 20170316
  Transmission Date: 20170428
  Serious: Yes (Hospitalization, Other)
  Sender: FDA-Public Use
  Company Number: US-GILEAD-2017-0254875

PATIENT
  Age: 51 Year
  Sex: Female

DRUGS (5)
  1. ORENITRAM [Concomitant]
     Active Substance: TREPROSTINIL
  2. AMLODIPINE [Concomitant]
     Active Substance: AMLODIPINE BESYLATE
  3. AMBRISENTAN [Suspect]
     Active Substance: AMBRISENTAN
     Indication: PRODUCT USED FOR UNKNOWN INDICATION
     Dosage: 10 MG, QD
     Route: 065
     Dates: start: 20160422
  4. ADCIRCA [Concomitant]
     Active Substance: TADALAFIL
  5. UPTRAVI [Concomitant]
     Active Substance: SELEXIPAG

REACTIONS (7)
  - Cardiomegaly [Unknown]
  - Cough [Not Recovered/Not Resolved]
  - Arthralgia [Not Recovered/Not Resolved]
  - Cholecystectomy [Unknown]
  - Unevaluable event [Unknown]
  - Malaise [Unknown]
  - Dysmenorrhoea [Not Recovered/Not Resolved]
